FAERS Safety Report 19420929 (Version 1)
Quarter: 2021Q2

REPORT INFORMATION
  Report Type: Spontaneous
  Country: US (occurrence: US)
  Receive Date: 20210616
  Receipt Date: 20210616
  Transmission Date: 20210717
  Serious: No
  Sender: FDA-Public Use
  Company Number: US-DSJP-DSU-2021-118068

PATIENT
  Age: 29 Year
  Sex: Female

DRUGS (1)
  1. TURALIO [Suspect]
     Active Substance: PEXIDARTINIB HYDROCHLORIDE
     Indication: GIANT CELL TUMOUR OF TENDON SHEATH
     Dosage: 800 MG, QD
     Route: 048
     Dates: start: 201910, end: 202102

REACTIONS (5)
  - Nausea [Recovered/Resolved]
  - Hair colour changes [Unknown]
  - Diarrhoea [Recovered/Resolved]
  - Fatigue [Unknown]
  - Acne cystic [Unknown]

NARRATIVE: CASE EVENT DATE: 2019
